FAERS Safety Report 6135478-9 (Version None)
Quarter: 2009Q1

REPORT INFORMATION
  Report Type: 
  Country: None (occurrence: None)
  Receive Date: 20090327
  Receipt Date: 20090323
  Transmission Date: 20090719
  Serious: Yes (Hospitalization)
  Sender: FDA-Public Use
  Company Number: A0774591A

PATIENT
  Age: 84 Year
  Sex: Male

DRUGS (9)
  1. ADVAIR HFA [Suspect]
     Indication: ASTHMA
     Dosage: 1PUFF TWICE PER DAY
     Route: 055
     Dates: start: 20070101, end: 20090101
  2. COUMADIN [Concomitant]
  3. LANOXIN [Concomitant]
  4. POTASSIUM CHLORIDE [Concomitant]
  5. NEXIUM [Concomitant]
  6. ALLOPURINOL [Concomitant]
  7. FUROSEMIDE [Concomitant]
  8. NORVASC [Concomitant]
  9. OXYGEN [Concomitant]

REACTIONS (4)
  - BRONCHITIS [None]
  - BRONCHOPNEUMONIA [None]
  - CHILLS [None]
  - PYREXIA [None]
